FAERS Safety Report 8034028-X (Version None)
Quarter: 2011Q4

REPORT INFORMATION
  Report Type: 
  Country: None (occurrence: None)
  Receive Date: 20111202
  Receipt Date: 20101209
  Transmission Date: 20120403
  Serious: Yes (Disabling)
  Sender: FDA-Public Use
  Company Number: WAES 0604USA01926

PATIENT
  Age: 57 Year
  Sex: Female

DRUGS (2)
  1. FOSAMAX [Suspect]
     Dosage: PO ; PO
     Route: 048
     Dates: start: 20051201, end: 20060301
  2. FOSAMAX [Suspect]
     Dosage: PO ; PO
     Route: 048
     Dates: start: 19950101, end: 20010101

REACTIONS (2)
  - OSTEONECROSIS [None]
  - BONE DENSITY DECREASED [None]
